FAERS Safety Report 10706389 (Version 1)
Quarter: 2015Q1

REPORT INFORMATION
  Report Type: Spontaneous
  Country: FI (occurrence: None)
  Receive Date: 20150109
  Receipt Date: 20150109
  Transmission Date: 20150721
  Serious: Yes (Hospitalization)
  Sender: FDA-Public Use
  Company Number: 2693292

PATIENT
  Age: 62 Year
  Sex: Female

DRUGS (5)
  1. DEXAMETHASONE. [Concomitant]
     Active Substance: DEXAMETHASONE
  2. OXALIPLATIN. [Suspect]
     Active Substance: OXALIPLATIN
     Indication: BRAIN NEOPLASM MALIGNANT
     Route: 042
     Dates: start: 20141119, end: 20141210
  3. CAPECITABINE. [Concomitant]
     Active Substance: CAPECITABINE
  4. EPIRUBICIN HYDROCHLORIDE. [Concomitant]
     Active Substance: EPIRUBICIN HYDROCHLORIDE
  5. OXALIPLATIN. [Suspect]
     Active Substance: OXALIPLATIN
     Indication: NEOADJUVANT THERAPY
     Route: 042
     Dates: start: 20141119, end: 20141210

REACTIONS (5)
  - Blood pressure increased [None]
  - Pulse abnormal [None]
  - Nausea [None]
  - Infusion related reaction [None]
  - Vomiting [None]
